FAERS Safety Report 12289896 (Version 1)
Quarter: 2016Q2

REPORT INFORMATION
  Report Type: Not Available
  Country: CH (occurrence: CH)
  Receive Date: 20160421
  Receipt Date: 20160421
  Transmission Date: 20160815
  Serious: Yes (Hospitalization)
  Sender: FDA-Public Use
  Company Number: CH-NAPPMUNDI-GBR-2016-0035433

PATIENT
  Age: 63 Year
  Sex: Male

DRUGS (10)
  1. DAPAGLIFLOZIN [Concomitant]
     Active Substance: DAPAGLIFLOZIN
     Dosage: 5 MG, DAILY (1-0-0-0)
     Route: 048
  2. ASPIRIN CARDIO [Concomitant]
     Active Substance: ASPIRIN
     Dosage: 100 MG, DAILY (0-0-1-0)
     Route: 048
  3. SERESTA [Suspect]
     Active Substance: OXAZEPAM
     Indication: PRODUCT USED FOR UNKNOWN INDICATION
     Dosage: 15 MG, TID (1-1-1-0)
     Route: 048
  4. SEREVENT DISKUS [Concomitant]
     Active Substance: SALMETEROL XINAFOATE
     Dosage: 1 DF, QID
     Route: 055
  5. SPIRIVA [Concomitant]
     Active Substance: TIOTROPIUM BROMIDE MONOHYDRATE
     Dosage: 1 DF, DAILY (1-0-0-0)
     Route: 055
  6. OXYCONTIN [Suspect]
     Active Substance: OXYCODONE HYDROCHLORIDE
     Indication: PAIN
     Dosage: 35 MG, BID (1-0-1-0)
     Route: 048
  7. LYRICA [Suspect]
     Active Substance: PREGABALIN
     Indication: PAIN
     Dosage: 1200 MG, DAILY (2-0-4-0)
     Route: 048
  8. BELOC                              /00376902/ [Concomitant]
     Active Substance: METOPROLOL TARTRATE
     Dosage: 25 MG, DAILY (1-0-0-0)
     Route: 048
  9. NEXIUM [Concomitant]
     Active Substance: ESOMEPRAZOLE MAGNESIUM
     Dosage: 40 MG, DAILY (1-0-1-0)
     Route: 048
  10. SERETIDE [Concomitant]
     Active Substance: FLUTICASONE PROPIONATE\SALMETEROL XINAFOATE
     Dosage: 500 MCG, BID
     Route: 055

REACTIONS (3)
  - Respiratory depression [Recovered/Resolved]
  - Altered state of consciousness [Recovered/Resolved]
  - Coma scale abnormal [Recovered/Resolved]

NARRATIVE: CASE EVENT DATE: 20160309
